FAERS Safety Report 9500401 (Version 4)
Quarter: 2016Q1

REPORT INFORMATION
  Report Type: Report from Study
  Country: DE (occurrence: DE)
  Receive Date: 20130905
  Receipt Date: 20160301
  Transmission Date: 20160526
  Serious: No
  Sender: FDA-Public Use
  Company Number: DE-TEVA-430245USA

PATIENT
  Age: 74 Year
  Sex: Male

DRUGS (5)
  1. BENDAMUSTINE [Suspect]
     Active Substance: BENDAMUSTINE
     Dosage: 190 MG, CYCLIC (CYCLE 3, DAY 1 + 2
     Route: 042
     Dates: start: 20130923
  2. BENDAMUSTINE [Suspect]
     Active Substance: BENDAMUSTINE
     Dosage: 190MG, (CYCLE 4, DAY 1 + 2)
     Route: 042
     Dates: start: 20131021
  3. BENDAMUSTINE [Suspect]
     Active Substance: BENDAMUSTINE
     Indication: CHRONIC LYMPHOCYTIC LEUKAEMIA
     Dosage: 320 MG PER CYCLE; DAY 1 AND 2 (CYCLE 1)
     Route: 042
     Dates: start: 20130617, end: 20130826
  4. BENDAMUSTINE [Suspect]
     Active Substance: BENDAMUSTINE
     Dosage: 190MG, (CYCLE 6, DAY 1 + 2)
     Route: 042
     Dates: start: 20131119
  5. BENDAMUSTINE [Suspect]
     Active Substance: BENDAMUSTINE
     Dosage: 190 MG, CYCLIC (CYCLE 5 DAY 1 + 2)
     Route: 042
     Dates: start: 20131119

REACTIONS (1)
  - Leukopenia [Recovered/Resolved]

NARRATIVE: CASE EVENT DATE: 20130722
